FAERS Safety Report 16328094 (Version 2)
Quarter: 2025Q3

REPORT INFORMATION
  Report Type: Spontaneous
  Country: EU (occurrence: EU)
  Receive Date: 20190518
  Receipt Date: 20250819
  Transmission Date: 20251020
  Serious: Yes (Other)
  Sender: AUROBINDO
  Company Number: EU-AUROBINDO-AUR-APL-2019-025643

PATIENT
  Age: 53 Year
  Sex: Male

DRUGS (6)
  1. CEFUROXIME [Suspect]
     Active Substance: CEFUROXIME
     Indication: Pleural effusion
     Dosage: 2 MILLIGRAM, TWO TIMES A DAY
     Route: 065
  2. ALBUMIN HUMAN [Suspect]
     Active Substance: ALBUMIN HUMAN
     Indication: Pleural effusion
     Route: 065
  3. ALBUMIN HUMAN [Suspect]
     Active Substance: ALBUMIN HUMAN
     Indication: Hypoalbuminaemia
     Route: 065
  4. MOXIFLOXACIN [Suspect]
     Active Substance: MOXIFLOXACIN
     Indication: Pleural effusion
     Dosage: 400 MILLIGRAM, ONCE A DAY
     Route: 065
  5. NILOTINIB [Suspect]
     Active Substance: NILOTINIB
     Indication: Pleural effusion
     Dosage: 200 MILLIGRAM, TWO TIMES A DAY
     Route: 065
  6. VALSARTAN [Suspect]
     Active Substance: VALSARTAN
     Indication: Pleural effusion
     Route: 065

REACTIONS (1)
  - Therapeutic product effect incomplete [Unknown]
